FAERS Safety Report 7357789-1 (Version None)
Quarter: 2011Q1

REPORT INFORMATION
  Report Type: 
  Country: None (occurrence: None)
  Receive Date: 20110309
  Receipt Date: 20110224
  Transmission Date: 20110831
  Serious: Yes (Other)
  Sender: FDA-Public Use
  Company Number: 2011AP000355

PATIENT
  Age: 86 Year
  Sex: Male

DRUGS (7)
  1. LANSOPRAZOLE [Concomitant]
  2. CARBIDOPA (CARBIDOPA) [Concomitant]
  3. MELOXICAM [Concomitant]
  4. LEVODOPA (LEVODOPA) [Concomitant]
  5. ASPIRIN [Concomitant]
  6. FOSAMAX [Concomitant]
  7. RAMIPRIL [Suspect]
     Indication: HYPERTENSION
     Dosage: 2.5 MG

REACTIONS (2)
  - LIP SWELLING [None]
  - RASH [None]
